FAERS Safety Report 23528879 (Version 1)
Quarter: 2024Q1

REPORT INFORMATION
  Report Type: Report from Study
  Country: CA (occurrence: CA)
  Receive Date: 20240215
  Receipt Date: 20240215
  Transmission Date: 20240409
  Serious: Yes (Other)
  Sender: FDA-Public Use
  Company Number: CA-ABBVIE-5633991

PATIENT
  Sex: Female

DRUGS (1)
  1. HUMIRA [Suspect]
     Active Substance: ADALIMUMAB
     Indication: Crohn^s disease
     Route: 058
     Dates: start: 20100224

REACTIONS (4)
  - Rectal cancer [Unknown]
  - Rectal haemorrhage [Unknown]
  - Gastrointestinal obstruction [Recovered/Resolved]
  - Frequent bowel movements [Unknown]

NARRATIVE: CASE EVENT DATE: 20240208
